FAERS Safety Report 8073314-4 (Version None)
Quarter: 2011Q4

REPORT INFORMATION
  Report Type: 
  Country: None (occurrence: None)
  Receive Date: 20111221
  Receipt Date: 20111004
  Transmission Date: 20120403
  Serious: Yes (Hospitalization, Other)
  Sender: FDA-Public Use
  Company Number: PHHY2007US03626

PATIENT
  Age: 37 Year
  Sex: Female
  Weight: 68 kg

DRUGS (5)
  1. FOLIC ACID [Concomitant]
  2. OXIKON (OXYCODONE HYDROCHLORIDE) [Concomitant]
  3. EXJADE [Suspect]
     Indication: BLOOD IRON INCREASED
     Dosage: 500 MG, DAILY, ORAL
     Route: 048
     Dates: start: 20060524
  4. OXYCODONE HCL [Concomitant]
  5. HYDREA [Concomitant]

REACTIONS (9)
  - HAEMATOCRIT DECREASED [None]
  - MALAISE [None]
  - BLOOD UREA DECREASED [None]
  - BLOOD BILIRUBIN DECREASED [None]
  - ASPARTATE AMINOTRANSFERASE INCREASED [None]
  - RED CELL DISTRIBUTION WIDTH DECREASED [None]
  - RED BLOOD CELL COUNT DECREASED [None]
  - SICKLE CELL ANAEMIA WITH CRISIS [None]
  - BLOOD BILIRUBIN INCREASED [None]
